FAERS Safety Report 5474706-X (Version None)
Quarter: 2007Q3

REPORT INFORMATION
  Report Type: 
  Country: None (occurrence: None)
  Receive Date: 20070927
  Receipt Date: 20070927
  Transmission Date: 20080115
  Serious: Yes (Hospitalization)
  Sender: FDA-Public Use
  Company Number: None

PATIENT
  Sex: Female
  Weight: 56.8 kg

DRUGS (12)
  1. CYCLOPHOSPHAMIDE [Suspect]
     Dosage: 1155 MG
  2. DOXIL [Suspect]
     Dosage: 62 MG
  3. NEULASTA [Suspect]
     Dosage: 6 MG
  4. PREDNISONE TAB [Suspect]
     Dosage: 300 MG
  5. RITUXIMAB (MOAB C2B8 ANTI CD20, CHIMERIC) [Suspect]
     Dosage: 577 MG
  6. VINCRISTINE SULFATE [Suspect]
     Dosage: 2 MG
  7. ASPIRIN [Concomitant]
  8. CALTRATE [Concomitant]
  9. LEXAPRO [Concomitant]
  10. ZOCOR [Concomitant]
  11. PROTONIX [Concomitant]
  12. SYNTHROID [Concomitant]

REACTIONS (1)
  - PNEUMONIA [None]
